FAERS Safety Report 7722123-1 (Version None)
Quarter: 2011Q3

REPORT INFORMATION
  Report Type: 
  Country: None (occurrence: None)
  Receive Date: 20110831
  Receipt Date: 20110825
  Transmission Date: 20111222
  Serious: Yes (Other)
  Sender: FDA-Public Use
  Company Number: US-PFIZER INC-2010153181

PATIENT
  Sex: Female
  Weight: 70.295 kg

DRUGS (5)
  1. LYRICA [Suspect]
     Indication: FIBROMYALGIA
     Dosage: 50 MG, 1X/DAY
     Route: 048
     Dates: start: 20110301, end: 20110401
  2. MOTRIN [Concomitant]
     Dosage: 800 MG, UNK
  3. NEURONTIN [Suspect]
     Indication: NEURALGIA
     Dosage: UNK
     Dates: start: 20100101, end: 20110301
  4. MILNACIPRAN [Suspect]
     Dosage: UNK
  5. AMITRIPTYLINE HCL [Suspect]
     Dosage: UNK

REACTIONS (10)
  - SOMNOLENCE [None]
  - DRUG INEFFECTIVE [None]
  - CARDIAC DISORDER [None]
  - LOSS OF CONSCIOUSNESS [None]
  - PAIN [None]
  - SUICIDAL IDEATION [None]
  - NAUSEA [None]
  - MUSCULOSKELETAL STIFFNESS [None]
  - TREMOR [None]
  - MALAISE [None]
